FAERS Safety Report 16543214 (Version 1)
Quarter: 2019Q3

REPORT INFORMATION
  Report Type: Report from Study
  Country: AU (occurrence: AU)
  Receive Date: 20190709
  Receipt Date: 20190709
  Transmission Date: 20191004
  Serious: Yes (Hospitalization)
  Sender: FDA-Public Use
  Company Number: AU-TOLMAR, INC.-2019AU006983

PATIENT

DRUGS (2)
  1. COSUDEX [Concomitant]
     Active Substance: BICALUTAMIDE
     Route: 065
  2. ELIGARD [Suspect]
     Active Substance: LEUPROLIDE ACETATE
     Indication: PROSTATE CANCER
     Dosage: 22.5 MG,  EVERY 3 MONTHS
     Route: 058
     Dates: start: 2016

REACTIONS (2)
  - Adverse event [Unknown]
  - Mental disorder [Unknown]
